FAERS Safety Report 13489833 (Version 1)
Quarter: 2017Q2

REPORT INFORMATION
  Report Type: Spontaneous
  Country: FR (occurrence: FR)
  Receive Date: 20170427
  Receipt Date: 20170427
  Transmission Date: 20170830
  Serious: Yes (Other)
  Sender: FDA-Public Use
  Company Number: FR-009507513-1704FRA010957

PATIENT
  Sex: Male

DRUGS (2)
  1. LODALES [Suspect]
     Active Substance: SIMVASTATIN
     Indication: DYSLIPIDAEMIA
     Dosage: 20 MG, QD
     Route: 048
     Dates: start: 2010, end: 2015
  2. INEGY [Suspect]
     Active Substance: EZETIMIBE\SIMVASTATIN
     Indication: DYSLIPIDAEMIA
     Dosage: 20 MG, QD (TO BE CONFIRMED)
     Route: 048
     Dates: start: 2015

REACTIONS (1)
  - Metamorphopsia [Not Recovered/Not Resolved]
